FAERS Safety Report 18411614 (Version 1)
Quarter: 2020Q4

REPORT INFORMATION
  Report Type: Spontaneous
  Country: DE (occurrence: DE)
  Receive Date: 20201021
  Receipt Date: 20201021
  Transmission Date: 20210114
  Serious: Yes (Other)
  Sender: FDA-Public Use
  Company Number: DE-ANIPHARMA-2020-DE-000241

PATIENT
  Age: 51 Year
  Sex: Male

DRUGS (14)
  1. SIMVASTATIN. [Concomitant]
     Active Substance: SIMVASTATIN
     Dosage: PAUSES
     Route: 065
  2. METFORMIN [Suspect]
     Active Substance: METFORMIN HYDROCHLORIDE
     Dosage: 1000 MG BID
     Route: 065
  3. INSUMAN BASAL [Concomitant]
     Active Substance: INSULIN HUMAN
     Route: 065
  4. MOXONIDINE [Concomitant]
     Active Substance: MOXONIDINE
     Dosage: 0.2 TWO TIMES DAILY
     Route: 065
  5. DOXAZOSIN [Concomitant]
     Active Substance: DOXAZOSIN MESYLATE
     Dosage: 4 MG BID
     Route: 065
  6. CANDESARTAN CILEXETIL. [Suspect]
     Active Substance: CANDESARTAN CILEXETIL
     Indication: PRODUCT USED FOR UNKNOWN INDICATION
     Dosage: 16 MG BID
     Route: 048
  7. SPIRONOLACTONE. [Concomitant]
     Active Substance: SPIRONOLACTONE
     Dosage: DAILY
     Route: 065
  8. HCTZ [Concomitant]
     Active Substance: HYDROCHLOROTHIAZIDE
     Dosage: 12.5 MG DAILY
     Route: 065
  9. DULAGLUTIDE. [Suspect]
     Active Substance: DULAGLUTIDE
     Dosage: 1.5 MG WEEK
     Route: 058
  10. OMEPRAZOLE. [Suspect]
     Active Substance: OMEPRAZOLE
     Dosage: 40 MG DAILY
     Route: 065
  11. LERCANIDIPINE [Concomitant]
     Active Substance: LERCANIDIPINE
     Dosage: 10 MG BID
     Route: 065
  12. METAMIZOLE [Concomitant]
     Active Substance: METAMIZOLE
     Dosage: 500 MG TID
     Route: 065
  13. NITRENDIPINE [Concomitant]
     Active Substance: NITRENDIPINE
     Dosage: 5 MG DAILY IF REQUIRED
     Route: 065
  14. INSULIN LISPRO [Suspect]
     Active Substance: INSULIN LISPRO
     Dosage: 200
     Route: 058

REACTIONS (2)
  - Asthenia [Unknown]
  - Dyspnoea [Unknown]
